FAERS Safety Report 9285569 (Version 2)
Quarter: 2013Q2

REPORT INFORMATION
  Report Type: Report from Study
  Country: US (occurrence: US)
  Receive Date: 20130513
  Receipt Date: 20130522
  Transmission Date: 20140414
  Serious: Yes (Hospitalization)
  Sender: FDA-Public Use
  Company Number: US-ROCHE-1222263

PATIENT
  Age: 33 Year
  Sex: Female
  Weight: 61.9 kg

DRUGS (2)
  1. VEMURAFENIB [Suspect]
     Indication: NEOPLASM MALIGNANT
     Dosage: DATE OF LAST DOSE PRIOR TO SAE: 02/MAY/2013
     Route: 048
     Dates: start: 20130426
  2. VEMURAFENIB [Suspect]
     Route: 048
     Dates: start: 20130510

REACTIONS (4)
  - Rash [Recovered/Resolved]
  - Dehydration [Not Recovered/Not Resolved]
  - Vomiting [Not Recovered/Not Resolved]
  - Nausea [Not Recovered/Not Resolved]
